FAERS Safety Report 24741049 (Version 1)
Quarter: 2024Q4

REPORT INFORMATION
  Report Type: Report from Study
  Country: CO (occurrence: CO)
  Receive Date: 20241217
  Receipt Date: 20241217
  Transmission Date: 20250114
  Serious: Yes (Other)
  Sender: UCB
  Company Number: CO-UCBSA-2024065248

PATIENT
  Age: 72 Year
  Sex: Male

DRUGS (1)
  1. ROTIGOTINE [Suspect]
     Active Substance: ROTIGOTINE
     Indication: Parkinson^s disease
     Dosage: 06 MILLIGRAM, ONCE DAILY (QD)
     Route: 062
     Dates: start: 20231229, end: 20240710

REACTIONS (2)
  - Renal cancer [Not Recovered/Not Resolved]
  - Off label use [Unknown]

NARRATIVE: CASE EVENT DATE: 20231229
